FAERS Safety Report 8319080-6 (Version None)
Quarter: 2012Q2

REPORT INFORMATION
  Report Type: 
  Country: None (occurrence: None)
  Receive Date: 20120427
  Receipt Date: 20120418
  Transmission Date: 20120825
  Serious: Yes (Hospitalization, Disabling, Other)
  Sender: FDA-Public Use
  Company Number: GB-JNJFOC-20120301655

PATIENT
  Age: 63 Year
  Sex: Female

DRUGS (9)
  1. CLOZARIL [Suspect]
     Route: 048
     Dates: start: 19970414
  2. CLOZARIL [Suspect]
     Indication: SCHIZOPHRENIA
     Route: 048
  3. OXYBUTYNIN [Concomitant]
     Indication: URINARY INCONTINENCE
     Route: 048
     Dates: start: 20110801
  4. RISPERIDONE [Suspect]
     Indication: SCHIZOPHRENIA
     Route: 048
     Dates: start: 20110801
  5. CLOZARIL [Suspect]
     Route: 048
     Dates: start: 20110801
  6. RABEPRAZOLE SODIUM [Concomitant]
     Indication: PRODUCT USED FOR UNKNOWN INDICATION
     Route: 048
     Dates: start: 20110801
  7. SENNA [Concomitant]
     Indication: CONSTIPATION
     Route: 048
     Dates: start: 20110801
  8. FERROUS SULFATE TAB [Concomitant]
     Indication: ANAEMIA
     Route: 048
     Dates: start: 20110801
  9. ZOPICLONE [Concomitant]
     Indication: POOR QUALITY SLEEP
     Route: 048
     Dates: start: 20110801

REACTIONS (3)
  - MENTAL IMPAIRMENT [None]
  - MALAISE [None]
  - SCHIZOPHRENIA [None]
